FAERS Safety Report 9636670 (Version 1)
Quarter: 2013Q4

REPORT INFORMATION
  Report Type: Spontaneous
  Country: AR (occurrence: AR)
  Receive Date: 20131021
  Receipt Date: 20131021
  Transmission Date: 20140711
  Serious: Yes (Death, Hospitalization)
  Sender: FDA-Public Use
  Company Number: AR-009507513-1310ARG006271

PATIENT
  Sex: 0

DRUGS (2)
  1. DEXAMETHASONE [Suspect]
  2. IBUPROFEN [Suspect]

REACTIONS (1)
  - Gastrointestinal haemorrhage [Fatal]
